FAERS Safety Report 12597321 (Version 1)
Quarter: 2016Q3

REPORT INFORMATION
  Report Type: Spontaneous
  Country: US (occurrence: None)
  Receive Date: 20160726
  Receipt Date: 20160726
  Transmission Date: 20161109
  Serious: Yes (Other)
  Sender: FDA-Public Use
  Company Number: None

PATIENT
  Age: 3 Year
  Sex: Male
  Weight: 18.14 kg

DRUGS (1)
  1. QVAR [Suspect]
     Active Substance: BECLOMETHASONE DIPROPIONATE
     Indication: ASTHMA
     Dates: start: 20160717

REACTIONS (6)
  - Mood altered [None]
  - Headache [None]
  - Aggression [None]
  - Anger [None]
  - Depressed mood [None]
  - Diet refusal [None]

NARRATIVE: CASE EVENT DATE: 20160724
